FAERS Safety Report 17125376 (Version 1)
Quarter: 2019Q4

REPORT INFORMATION
  Report Type: Spontaneous
  Country: SE (occurrence: SE)
  Receive Date: 20191207
  Receipt Date: 20191207
  Transmission Date: 20200122
  Serious: Yes (Hospitalization)
  Sender: FDA-Public Use
  Company Number: SE-ACCORD-163746

PATIENT
  Sex: Male

DRUGS (5)
  1. IMOVANE [Suspect]
     Active Substance: ZOPICLONE
     Route: 048
     Dates: start: 201809, end: 201809
  2. LERGIGAN (PROMETHAZINE HYDROCHLORIDE) [Suspect]
     Active Substance: PROMETHAZINE HYDROCHLORIDE
     Route: 048
     Dates: start: 201809, end: 201809
  3. ALIMEMAZINE/ALIMEMAZINE TARTRATE [Suspect]
     Active Substance: TRIMEPRAZINE
     Route: 048
     Dates: start: 201809, end: 201809
  4. PROPAVAN [Suspect]
     Active Substance: PROPIOMAZINE
     Route: 048
     Dates: start: 201809, end: 201809
  5. SERTRALINE [Suspect]
     Active Substance: SERTRALINE HYDROCHLORIDE
     Route: 048
     Dates: start: 201809, end: 201809

REACTIONS (5)
  - Electrocardiogram QRS complex prolonged [Unknown]
  - Loss of consciousness [Unknown]
  - Intentional self-injury [Unknown]
  - Intentional overdose [Unknown]
  - Dysarthria [Unknown]

NARRATIVE: CASE EVENT DATE: 201809
